FAERS Safety Report 8573674-1 (Version None)
Quarter: 2012Q3

REPORT INFORMATION
  Report Type: 
  Country: None (occurrence: None)
  Receive Date: 20120806
  Receipt Date: 20120730
  Transmission Date: 20120928
  Serious: Yes (Hospitalization)
  Sender: FDA-Public Use
  Company Number: US-GLAXOSMITHKLINE-A0752410A

PATIENT
  Age: 71 Year
  Sex: Male
  Weight: 127.3 kg

DRUGS (7)
  1. STARLIX [Concomitant]
  2. VERAPAMIL [Concomitant]
  3. QUINAPRIL [Concomitant]
  4. AVANDIA [Suspect]
     Indication: DIABETES MELLITUS
     Dosage: 8MG PER DAY
     Route: 048
     Dates: start: 20051101, end: 20070501
  5. DETROL [Concomitant]
  6. ARICEPT [Concomitant]
  7. UROXATRAL [Concomitant]

REACTIONS (4)
  - TRANSIENT ISCHAEMIC ATTACK [None]
  - CARDIAC FAILURE CONGESTIVE [None]
  - WEIGHT INCREASED [None]
  - CORONARY ARTERY DISEASE [None]
